FAERS Safety Report 6583149-7 (Version None)
Quarter: 2010Q1

REPORT INFORMATION
  Report Type: 
  Country: None (occurrence: None)
  Receive Date: 20100216
  Receipt Date: 20100209
  Transmission Date: 20100710
  Serious: Yes (Other)
  Sender: FDA-Public Use
  Company Number: KR-ROCHE-684855

PATIENT
  Age: 74 Year
  Sex: Female

DRUGS (4)
  1. BONIVA [Suspect]
     Indication: OSTEOPOROSIS
     Dosage: RECEIVED INJECTIONS 3 OR 4 TIMES
     Route: 042
  2. EVISTA [Concomitant]
     Indication: OSTEOPOROSIS
     Dosage: TOOK FOR 4 TO 5 YEARS
     Dates: start: 20050101
  3. FOSAMAX [Concomitant]
     Indication: OSTEOPOROSIS
     Dosage: TOOK FOR 4 TO 5 YEARS
  4. ACTONEL [Concomitant]
     Indication: OSTEOPOROSIS
     Dosage: TOOK FOR 4 TO 5 YEARS

REACTIONS (1)
  - OSTEOMYELITIS [None]
